FAERS Safety Report 8474788-7 (Version None)
Quarter: 2012Q2

REPORT INFORMATION
  Report Type: 
  Country: None (occurrence: None)
  Receive Date: 20120622
  Receipt Date: 20120615
  Transmission Date: 20120825
  Serious: Yes (Hospitalization)
  Sender: FDA-Public Use
  Company Number: 2011SP056194

PATIENT
  Age: 24 Year
  Sex: Female
  Weight: 81.6475 kg

DRUGS (4)
  1. ORAL CONTRACEPTIVE PILL [Suspect]
     Indication: PRODUCT USED FOR UNKNOWN INDICATION
  2. COUMADIN [Suspect]
     Indication: ANTICOAGULANT THERAPY
     Dates: start: 20091201
  3. NUVARING [Suspect]
     Indication: MENSTRUAL CYCLE MANAGEMENT
     Dates: start: 20070101, end: 20091231
  4. NUVARING [Suspect]
     Indication: MENSTRUAL CYCLE MANAGEMENT
     Dates: start: 20090601

REACTIONS (17)
  - PNEUMONIA [None]
  - INTERNATIONAL NORMALISED RATIO DECREASED [None]
  - BLOOD TESTOSTERONE INCREASED [None]
  - PROTEIN S DEFICIENCY [None]
  - LUNG DISORDER [None]
  - DYSLIPIDAEMIA [None]
  - PULMONARY EMBOLISM [None]
  - THROMBOSIS [None]
  - IMPAIRED WORK ABILITY [None]
  - REFUSAL OF TREATMENT BY PATIENT [None]
  - MENOMETRORRHAGIA [None]
  - MIGRAINE [None]
  - HAEMORRHAGIC DIATHESIS [None]
  - DEEP VEIN THROMBOSIS [None]
  - BRONCHITIS [None]
  - HYPERCOAGULATION [None]
  - CHEST PAIN [None]
